FAERS Safety Report 7343857-7 (Version None)
Quarter: 2011Q1

REPORT INFORMATION
  Report Type: 
  Country: None (occurrence: None)
  Receive Date: 20110310
  Receipt Date: 20110228
  Transmission Date: 20110831
  Serious: Yes (Hospitalization, Other)
  Sender: FDA-Public Use
  Company Number: CA-ABBOTT-11P-028-0708070-00

PATIENT
  Sex: Female

DRUGS (3)
  1. PREVACID [Concomitant]
     Indication: GASTROOESOPHAGEAL REFLUX DISEASE
     Dates: start: 20040101
  2. HUMIRA [Suspect]
     Indication: CROHN'S DISEASE
     Route: 058
     Dates: start: 20080709, end: 20110110
  3. HUMIRA [Suspect]
     Dates: start: 20110204

REACTIONS (2)
  - ABDOMINAL ADHESIONS [None]
  - INTESTINAL STENOSIS [None]
